FAERS Safety Report 8561694-2 (Version None)
Quarter: 2012Q3

REPORT INFORMATION
  Report Type: 
  Country: None (occurrence: None)
  Receive Date: 20120802
  Receipt Date: 20120726
  Transmission Date: 20120928
  Serious: Yes (Life-Threatening, Other)
  Sender: FDA-Public Use
  Company Number: PHEH2012US013759

PATIENT
  Sex: Female

DRUGS (2)
  1. LOPRESSOR [Suspect]
     Dosage: 50 MG, Q12H
  2. METOPROLOL TARTRATE [Suspect]
     Dosage: 50 MG, UNK

REACTIONS (4)
  - VENTRICULAR EXTRASYSTOLES [None]
  - VENTRICULAR TACHYCARDIA [None]
  - PALPITATIONS [None]
  - FEELING ABNORMAL [None]
